FAERS Safety Report 7908363-7 (Version None)
Quarter: 2011Q4

REPORT INFORMATION
  Report Type: 
  Country: None (occurrence: None)
  Receive Date: 20111111
  Receipt Date: 20110905
  Transmission Date: 20120403
  Serious: Yes (Life-Threatening, Hospitalization, Disabling, Other)
  Sender: FDA-Public Use
  Company Number: GB-JNJFOC-20110905897

PATIENT
  Age: 31 Year
  Sex: Female
  Weight: 63.5 kg

DRUGS (24)
  1. TRAMADOL HYDROCHLORIDE [Suspect]
     Indication: ANALGESIC THERAPY
     Dosage: 50-100 MG QDS
     Route: 048
     Dates: start: 20110722
  2. PROCYCLIDINE HYDROCHLORIDE 2MG TAB [Suspect]
     Indication: EXTRAPYRAMIDAL DISORDER
     Route: 048
     Dates: start: 20110503, end: 20110510
  3. PAROXETINE HCL [Interacting]
     Indication: PRODUCT USED FOR UNKNOWN INDICATION
     Route: 048
     Dates: end: 20110501
  4. CLONAZEPAM [Suspect]
     Indication: SEDATION
     Route: 048
     Dates: start: 20110224, end: 20110410
  5. LORAZEPAM [Suspect]
     Indication: SEDATION
     Route: 065
     Dates: start: 20110523, end: 20110727
  6. PAROXETINE HCL [Interacting]
     Route: 048
     Dates: start: 19990801, end: 20110501
  7. OMEPRAZOLE [Suspect]
     Indication: DYSPEPSIA
     Route: 065
     Dates: start: 20110525
  8. TRAMADOL HYDROCHLORIDE [Suspect]
     Indication: NECK PAIN
     Dosage: 50-100 MG QDS
     Route: 048
     Dates: start: 20110722
  9. TRAMADOL HYDROCHLORIDE [Suspect]
     Dosage: 50-100 MG QDS FOR 7 DAYS
     Route: 048
     Dates: start: 20080722
  10. QUETIAPINE [Suspect]
     Indication: PSYCHOTIC DISORDER
     Route: 048
     Dates: start: 20110224, end: 20110506
  11. PAROXETINE HCL [Interacting]
     Indication: DEPRESSION
     Route: 048
     Dates: start: 19990801, end: 20110706
  12. DIAZEPAM [Suspect]
     Indication: MUSCLE SPASMS
     Route: 065
     Dates: start: 20110725
  13. TRAMADOL HYDROCHLORIDE [Suspect]
     Route: 048
     Dates: start: 20081201, end: 20101210
  14. TRAMADOL HYDROCHLORIDE [Suspect]
     Route: 048
     Dates: start: 20081201, end: 20101210
  15. DOMPERIDONE [Suspect]
     Indication: PRODUCT USED FOR UNKNOWN INDICATION
     Route: 065
  16. AMITRIPTYLINE HCL [Suspect]
     Indication: MUSCLE SPASMS
     Route: 065
     Dates: start: 20110810
  17. CODEINE SUL TAB [Suspect]
     Indication: ANALGESIC THERAPY
     Route: 065
     Dates: start: 20020101
  18. CODEINE SUL TAB [Suspect]
     Route: 065
     Dates: start: 20080101
  19. TRAMADOL HYDROCHLORIDE [Suspect]
     Dosage: 50-100 MG QDS FOR 7 DAYS
     Route: 048
     Dates: start: 20080722
  20. PAROXETINE HCL [Interacting]
     Indication: POST-TRAUMATIC STRESS DISORDER
     Route: 048
     Dates: start: 19990801, end: 20110706
  21. CODEINE SUL TAB [Suspect]
     Route: 065
     Dates: start: 20110615, end: 20110723
  22. MIRTAZAPINE [Suspect]
     Indication: DEPRESSION
     Dosage: 30 MG AND 15 MG AT NIGHT
     Route: 048
     Dates: start: 20100923, end: 20101108
  23. ALL OTHER THERAPEUTIC PRODUCTS [Suspect]
     Indication: PRODUCT USED FOR UNKNOWN INDICATION
     Route: 065
  24. AMITRIPTYLINE HCL [Suspect]
     Indication: NEURALGIA
     Route: 065
     Dates: start: 20110810

REACTIONS (45)
  - AGITATION [None]
  - PARALYSIS [None]
  - RESTLESSNESS [None]
  - NIGHTMARE [None]
  - ASTHENIA [None]
  - VOMITING [None]
  - TOXICITY TO VARIOUS AGENTS [None]
  - URINARY RETENTION [None]
  - SPEECH DISORDER [None]
  - COGWHEEL RIGIDITY [None]
  - PALLOR [None]
  - MUSCLE SPASMS [None]
  - SEROTONIN SYNDROME [None]
  - CONTUSION [None]
  - HALLUCINATION [None]
  - CYANOSIS [None]
  - INCONTINENCE [None]
  - EYE PAIN [None]
  - MALAISE [None]
  - DEPERSONALISATION [None]
  - TACHYCARDIA [None]
  - ANXIETY [None]
  - BLOOD SODIUM DECREASED [None]
  - DEPRESSION [None]
  - ARTHRALGIA [None]
  - DRUG INTERACTION [None]
  - FATIGUE [None]
  - MOOD SWINGS [None]
  - DELIRIUM [None]
  - H1N1 INFLUENZA [None]
  - FEELING OF BODY TEMPERATURE CHANGE [None]
  - SUICIDAL IDEATION [None]
  - SWOLLEN TONGUE [None]
  - CONVULSION [None]
  - MUSCLE RIGIDITY [None]
  - HYPERHIDROSIS [None]
  - CONFUSIONAL STATE [None]
  - PYREXIA [None]
  - HEADACHE [None]
  - SLEEP DISORDER [None]
  - PARAESTHESIA [None]
  - DRUG WITHDRAWAL SYNDROME [None]
  - DYSTONIA [None]
  - VISUAL IMPAIRMENT [None]
  - DIZZINESS [None]
